FAERS Safety Report 4390647-3 (Version None)
Quarter: 2004Q2

REPORT INFORMATION
  Report Type: 
  Country: None (occurrence: None)
  Receive Date: 20040630
  Receipt Date: 20040616
  Transmission Date: 20050107
  Serious: Yes (Other)
  Sender: FDA-Public Use
  Company Number: 158247

PATIENT
  Age: 38 Year
  Sex: Male

DRUGS (1)
  1. AVONEX [Suspect]
     Indication: MULTIPLE SCLEROSIS
     Dates: start: 19960101

REACTIONS (4)
  - GLOMERULONEPHRITIS FOCAL [None]
  - GLOMERULONEPHRITIS MINIMAL LESION [None]
  - HYPERTENSION [None]
  - RENAL FAILURE CHRONIC [None]
